FAERS Safety Report 11273114 (Version 1)
Quarter: 2015Q3

REPORT INFORMATION
  Report Type: Spontaneous
  Country: US (occurrence: None)
  Receive Date: 20150714
  Receipt Date: 20150714
  Transmission Date: 20151125
  Serious: Yes (Life-Threatening, Hospitalization)
  Sender: FDA-Public Use
  Company Number: None

PATIENT
  Age: 1 Month
  Sex: Female
  Weight: 64.41 kg

DRUGS (20)
  1. BIOTIN [Concomitant]
     Active Substance: BIOTIN
  2. PLAVIX [Concomitant]
     Active Substance: CLOPIDOGREL BISULFATE
  3. QUINAPRIL [Concomitant]
     Active Substance: QUINAPRIL\QUINAPRIL HYDROCHLORIDE
  4. COREG [Concomitant]
     Active Substance: CARVEDILOL
  5. FOLIC ACID. [Concomitant]
     Active Substance: FOLIC ACID
  6. LEXAPRO [Concomitant]
     Active Substance: ESCITALOPRAM OXALATE
  7. PROLIA [Suspect]
     Active Substance: DENOSUMAB
     Indication: OSTEOPENIA
     Dosage: NA INJECTION, EVERY 6 MONTHS
     Route: 030
     Dates: start: 20150706, end: 20150706
  8. PROCARDIA [Concomitant]
     Active Substance: NIFEDIPINE
  9. ADCIRCA [Concomitant]
     Active Substance: TADALAFIL
  10. EVOXAC [Concomitant]
     Active Substance: CEVIMELINE HYDROCHLORIDE
  11. SUCRALLAT [Concomitant]
  12. CALCIUM [Concomitant]
     Active Substance: CALCIUM
  13. PLAQUENIL [Concomitant]
     Active Substance: HYDROXYCHLOROQUINE SULFATE
  14. NIFEDIPINE. [Concomitant]
     Active Substance: NIFEDIPINE
  15. ASPIRIN. [Concomitant]
     Active Substance: ASPIRIN
  16. METHOTREXATE [Concomitant]
     Active Substance: METHOTREXATE
  17. DEXIANT [Concomitant]
  18. HYDROXYZCHLOROQINE [Concomitant]
  19. LOVAZA [Concomitant]
     Active Substance: OMEGA-3-ACID ETHYL ESTERS
  20. RESTORIL [Concomitant]
     Active Substance: TEMAZEPAM

REACTIONS (7)
  - Chills [None]
  - Syncope [None]
  - Asthenia [None]
  - Tremor [None]
  - Hypotension [None]
  - Pyrexia [None]
  - Heart rate decreased [None]

NARRATIVE: CASE EVENT DATE: 20150706
